FAERS Safety Report 16233557 (Version 5)
Quarter: 2019Q3

REPORT INFORMATION
  Report Type: Report from Study
  Country: DE (occurrence: DE)
  Receive Date: 20190424
  Receipt Date: 20190808
  Transmission Date: 20191004
  Serious: Yes (Other)
  Sender: FDA-Public Use
  Company Number: PHHO2019DE003943

PATIENT
  Age: 45 Year
  Sex: Female
  Weight: 76 kg

DRUGS (27)
  1. COMPARATOR DAUNORUBICIN [Suspect]
     Active Substance: DAUNORUBICIN
     Indication: ACUTE MYELOID LEUKAEMIA
     Dosage: UNK
     Route: 042
     Dates: start: 20190211
  2. POTASSIUM [Concomitant]
     Active Substance: POTASSIUM
     Indication: HYPOKALAEMIA
     Dosage: UNK
     Route: 065
     Dates: start: 20190412, end: 20190412
  3. CIPROFLOXACIN. [Concomitant]
     Active Substance: CIPROFLOXACIN
     Indication: INFECTION PROPHYLAXIS
     Dosage: UNK
     Route: 065
     Dates: start: 20190315, end: 20190408
  4. ENOXAPARIN [Concomitant]
     Active Substance: ENOXAPARIN
     Indication: THROMBOSIS PROPHYLAXIS
     Dosage: UNK
     Route: 065
     Dates: start: 20190311, end: 20190321
  5. GOSERELIN [Concomitant]
     Active Substance: GOSERELIN
     Indication: PROPHYLAXIS
     Dosage: UNK
     Route: 065
     Dates: start: 20190318, end: 20190318
  6. FUROSEMID [Concomitant]
     Active Substance: FUROSEMIDE
     Indication: OEDEMA
     Dosage: UNK
     Route: 065
     Dates: start: 20190328, end: 20190330
  7. AMPHOTERICIN B. [Concomitant]
     Active Substance: AMPHOTERICIN B
     Indication: MUCOSAL INFLAMMATION
     Dosage: UNK
     Route: 065
     Dates: start: 20190330, end: 20190423
  8. SALVIATHYMOL [Concomitant]
     Indication: MUCOSAL INFLAMMATION
     Dosage: UNK
     Route: 065
     Dates: start: 20190331, end: 20190423
  9. CGP 41251 [Suspect]
     Active Substance: MIDOSTAURIN
     Indication: ACUTE MYELOID LEUKAEMIA
     Dosage: UNK
     Route: 048
     Dates: start: 20190219
  10. AMPHOTERICIN B. [Concomitant]
     Active Substance: AMPHOTERICIN B
     Indication: INFECTION PROPHYLAXIS
     Dosage: UNK
     Route: 065
     Dates: start: 20190401, end: 20190423
  11. MAGNESIUM [Concomitant]
     Active Substance: MAGNESIUM
     Indication: PROPHYLAXIS
     Dosage: UNK
     Route: 065
     Dates: start: 20190413, end: 20190424
  12. PANTOPRAZOL [Concomitant]
     Active Substance: PANTOPRAZOLE SODIUM
     Indication: PROPHYLAXIS
     Dosage: UNK
     Route: 065
     Dates: start: 20190302, end: 20190425
  13. ACICLOVIR [Concomitant]
     Active Substance: ACYCLOVIR
     Indication: INFECTION PROPHYLAXIS
     Dosage: UNK
     Route: 065
     Dates: start: 20190302, end: 20190425
  14. ALLOPURINOL. [Concomitant]
     Active Substance: ALLOPURINOL
     Indication: PROPHYLAXIS
  15. DIMENHYDRINAT [Concomitant]
     Active Substance: DIMENHYDRINATE
     Indication: NAUSEA
     Dosage: UNK
     Route: 065
     Dates: start: 20190329, end: 20190403
  16. METAMIZOLE [Concomitant]
     Active Substance: METAMIZOLE
     Indication: PAIN
     Dosage: UNK
     Route: 065
     Dates: start: 20190327, end: 20190411
  17. MAGNESIUM [Concomitant]
     Active Substance: MAGNESIUM
     Indication: HYPOMAGNESAEMIA
     Dosage: UNK
     Route: 065
     Dates: start: 20190224, end: 20190412
  18. ONDANSETRON [Concomitant]
     Active Substance: ONDANSETRON
     Indication: PROPHYLAXIS OF NAUSEA AND VOMITING
     Dosage: UNK
     Route: 065
     Dates: start: 20190327, end: 20190330
  19. MIDAZOLAM [Concomitant]
     Active Substance: MIDAZOLAM HYDROCHLORIDE
     Indication: PROPHYLAXIS
     Dosage: UNK
     Route: 065
     Dates: start: 20190313, end: 20190318
  20. COMPARATOR DAUNORUBICIN [Suspect]
     Active Substance: DAUNORUBICIN
     Indication: ACUTE MYELOID LEUKAEMIA
  21. ATOVAQUONE. [Concomitant]
     Active Substance: ATOVAQUONE
     Indication: COUGH
     Dosage: UNK
     Route: 065
     Dates: start: 20190208
  22. METAMIZOLE [Concomitant]
     Active Substance: METAMIZOLE
     Indication: SEPSIS
     Dosage: UNK
     Route: 065
     Dates: start: 20190223, end: 20190321
  23. COMPARATOR CYTARABINE [Suspect]
     Active Substance: CYTARABINE
     Indication: ACUTE MYELOID LEUKAEMIA
     Dosage: 200 MG/M2, QD
     Route: 042
     Dates: start: 20190211
  24. ALLOPURINOL. [Concomitant]
     Active Substance: ALLOPURINOL
     Indication: HYPERURICAEMIA
     Dosage: UNK
     Route: 065
     Dates: start: 20190327, end: 20190401
  25. FUROSEMID [Concomitant]
     Active Substance: FUROSEMIDE
     Indication: PROPHYLAXIS
  26. DIMENHYDRINAT [Concomitant]
     Active Substance: DIMENHYDRINATE
     Dosage: UNK
     Route: 065
     Dates: start: 20190411, end: 20190413
  27. METAMIZOLE [Concomitant]
     Active Substance: METAMIZOLE
     Dosage: UNK
     Route: 065
     Dates: start: 20190411, end: 20190413

REACTIONS (1)
  - Lung infection [Recovered/Resolved]

NARRATIVE: CASE EVENT DATE: 20190408
